FAERS Safety Report 15999716 (Version 1)
Quarter: 2019Q1

REPORT INFORMATION
  Report Type: Spontaneous
  Country: US (occurrence: US)
  Receive Date: 20190225
  Receipt Date: 20190225
  Transmission Date: 20190418
  Serious: No
  Sender: FDA-Public Use
  Company Number: US-009507513-1902USA006829

PATIENT
  Age: 72 Year
  Sex: Female

DRUGS (1)
  1. BELSOMRA [Suspect]
     Active Substance: SUVOREXANT
     Indication: INSOMNIA
     Dosage: 1 TABLET DAILY
     Route: 048
     Dates: start: 20190214

REACTIONS (2)
  - Somnolence [Not Recovered/Not Resolved]
  - Fatigue [Not Recovered/Not Resolved]

NARRATIVE: CASE EVENT DATE: 20190214
